FAERS Safety Report 11277064 (Version 2)
Quarter: 2017Q4

REPORT INFORMATION
  Report Type: Spontaneous
  Country: BE (occurrence: BE)
  Receive Date: 20150716
  Receipt Date: 20171219
  Transmission Date: 20180320
  Serious: Yes (Hospitalization)
  Sender: FDA-Public Use
  Company Number: BE-OTSUKA-DJ201502239

PATIENT
  Age: 41 Year
  Sex: Male

DRUGS (10)
  1. ARIPIPRAZOLE. [Suspect]
     Active Substance: ARIPIPRAZOLE
     Indication: SCHIZOAFFECTIVE DISORDER
     Route: 048
     Dates: start: 20141129, end: 201501
  2. INVEGA [Concomitant]
     Active Substance: PALIPERIDONE
     Indication: PRODUCT USED FOR UNKNOWN INDICATION
     Dosage: UNK
     Route: 048
     Dates: start: 20140716, end: 20141216
  3. ABILIFY MAINTENA [Suspect]
     Active Substance: ARIPIPRAZOLE
     Indication: SCHIZOAFFECTIVE DISORDER
     Dosage: UNK,1 TIME DOSE
     Route: 030
     Dates: start: 20141231, end: 20141231
  4. DEPAKINE [Concomitant]
     Active Substance: VALPROATE SODIUM
     Indication: PRODUCT USED FOR UNKNOWN INDICATION
     Dosage: UNK
     Route: 065
  5. PALIPERIDONE PALMITATE [Concomitant]
     Active Substance: PALIPERIDONE PALMITATE
     Indication: SCHIZOAFFECTIVE DISORDER
     Dosage: 150 MG, UNK
     Route: 065
     Dates: start: 20140716, end: 20141216
  6. PALIPERIDONE. [Concomitant]
     Active Substance: PALIPERIDONE
     Indication: SCHIZOAFFECTIVE DISORDER
     Dosage: 150 UNK, UNK
     Route: 065
     Dates: start: 20140716, end: 20141216
  7. XEPLION [Concomitant]
     Active Substance: PALIPERIDONE PALMITATE
     Indication: PRODUCT USED FOR UNKNOWN INDICATION
     Dosage: UNK
     Route: 048
     Dates: start: 20140716, end: 20141216
  8. KEMADRIN [Concomitant]
     Active Substance: PROCYCLIDINE HYDROCHLORIDE
     Indication: PRODUCT USED FOR UNKNOWN INDICATION
     Dosage: UNK
     Route: 065
  9. CAMCOLIT [Concomitant]
     Active Substance: LITHIUM CARBONATE
     Indication: PRODUCT USED FOR UNKNOWN INDICATION
     Dosage: UNK
     Route: 065
  10. ETUMINE [Concomitant]
     Active Substance: CLOTHIAPINE
     Indication: PRODUCT USED FOR UNKNOWN INDICATION
     Route: 065

REACTIONS (4)
  - Drug ineffective [Unknown]
  - Off label use [Unknown]
  - Psychotic symptom [Recovered/Resolved]
  - Psychotic disorder [Recovering/Resolving]

NARRATIVE: CASE EVENT DATE: 20141129
